FAERS Safety Report 4409123-4 (Version None)
Quarter: 2004Q2

REPORT INFORMATION
  Report Type: 
  Country: None (occurrence: None)
  Receive Date: 20040618
  Receipt Date: 20040510
  Transmission Date: 20050107
  Serious: No
  Sender: FDA-Public Use
  Company Number: US-JNJFOC-20040502329

PATIENT
  Age: 49 Year
  Sex: Female
  Weight: 75.7507 kg

DRUGS (3)
  1. ORTHO EVRA [Suspect]
     Indication: CONTRACEPTION
     Dosage: 1 DOSE(S), 3 IN 4 WEEK, TRANSDERMAL
     Route: 062
     Dates: start: 20040502
  2. ENALAPRIL MALEATE [Concomitant]
  3. LEVOXYL [Concomitant]

REACTIONS (4)
  - APPLICATION SITE REACTION [None]
  - DYSMENORRHOEA [None]
  - DYSURIA [None]
  - HEADACHE [None]
